FAERS Safety Report 7039681-5 (Version None)
Quarter: 2010Q4

REPORT INFORMATION
  Report Type: 
  Country: None (occurrence: None)
  Receive Date: 20101012
  Receipt Date: 20101005
  Transmission Date: 20110411
  Serious: Yes (Other)
  Sender: FDA-Public Use
  Company Number: SE-B.I. PHARMACEUTICALS,INC./RIDGEFIELD-2010-SW-00303SW

PATIENT
  Sex: Female

DRUGS (1)
  1. PERSANTIN [Suspect]
     Indication: BLINDNESS TRANSIENT
     Dates: end: 20100914

REACTIONS (2)
  - ANAPHYLACTIC REACTION [None]
  - DIARRHOEA [None]
